FAERS Safety Report 16594668 (Version 6)
Quarter: 2023Q4

REPORT INFORMATION
  Report Type: Report from Study
  Country: ES (occurrence: ES)
  Receive Date: 20190718
  Receipt Date: 20231114
  Transmission Date: 20240110
  Serious: Yes (Death, Hospitalization, Other)
  Sender: FDA-Public Use
  Company Number: ES-PFIZER INC-2018227753

PATIENT
  Age: 69 Year
  Sex: Female
  Weight: 55 kg

DRUGS (15)
  1. PREDNISONE [Suspect]
     Active Substance: PREDNISONE
     Indication: Diffuse large B-cell lymphoma
     Dosage: 100 MILLIGRAM, CYCLE (100 MG, CYCLIC DAYS 1-5)
     Route: 048
     Dates: start: 20180404, end: 20180408
  2. DOXORUBICIN HYDROCHLORIDE [Suspect]
     Active Substance: DOXORUBICIN HYDROCHLORIDE
     Indication: Diffuse large B-cell lymphoma
     Dosage: 50 MILLIGRAM/SQ. METER, CYCLE (50 MG/M2,
     Route: 042
     Dates: start: 20180404, end: 20180404
  3. RITUXIMAB [Suspect]
     Active Substance: RITUXIMAB
     Indication: Diffuse large B-cell lymphoma
     Dosage: 375 MILLIGRAM/SQ. METER, CYCLE (375 MG/M2
     Route: 042
     Dates: start: 20180404, end: 20180404
  4. CYCLOPHOSPHAMIDE [Suspect]
     Active Substance: CYCLOPHOSPHAMIDE
     Indication: Diffuse large B-cell lymphoma
     Dosage: 750 MILLIGRAM/SQ. METER, CYCLE (750 MG/M2, DAY 1)
     Route: 042
     Dates: start: 20180404, end: 20180404
  5. VINCRISTINE [Suspect]
     Active Substance: VINCRISTINE
     Indication: Diffuse large B-cell lymphoma
     Dosage: 4 MILLIGRAM/SQ. METER, CYCLE (4 MG/M2, CYCLIC)
     Route: 042
     Dates: start: 20180404, end: 20180404
  6. VINCRISTINE [Suspect]
     Active Substance: VINCRISTINE
     Dosage: 1.4 MILLIGRAM/SQ. METER
     Route: 042
     Dates: start: 20180404, end: 20180404
  7. AVADOMIDE [Suspect]
     Active Substance: AVADOMIDE
     Indication: Diffuse large B-cell lymphoma
     Dosage: 2MG, CYCLE (DAYS 1-5 AND 8-12 FOR 10/21 DAYS)
     Route: 048
     Dates: start: 20180404, end: 20180408
  8. AVADOMIDE [Suspect]
     Active Substance: AVADOMIDE
     Dosage: 2 MILLIGRAM, CYCLE (2 MG, CYCLIC (DAYS 1-5 AND 8-
     Route: 048
     Dates: start: 20180404, end: 20180411
  9. ALLOPURINOL [Concomitant]
     Active Substance: ALLOPURINOL
     Indication: Prophylaxis
     Dosage: 300 MILLIGRAM, QD (300 MG, 1X/DAY)
     Route: 048
     Dates: start: 20180405
  10. ONDANSETRON [Concomitant]
     Active Substance: ONDANSETRON
     Indication: Prophylaxis of nausea and vomiting
     Dosage: 72 MILLIGRAM, QD (24 MG, 3X/DAY)
     Route: 042
     Dates: start: 20180404, end: 20180406
  11. NEULASTA [Concomitant]
     Active Substance: PEGFILGRASTIM
     Indication: Infection prophylaxis
     Dosage: UNK (AS PER PROTOCOL, UNK)
     Route: 065
     Dates: start: 20180405
  12. Actocortin [Concomitant]
     Indication: Erythema
     Dosage: 10 MILLIGRAM, TOTAL (UNK, ONCE)
     Route: 042
     Dates: start: 20180404, end: 20180404
  13. Actocortin [Concomitant]
     Indication: Prophylaxis of nausea and vomiting
     Dosage: UNK
     Route: 065
  14. ZOLPIDEM [Concomitant]
     Active Substance: ZOLPIDEM TARTRATE
     Indication: Prophylaxis
     Dosage: 10 MILLIGRAM, QD (10 MG, 1X/DAY)
     Route: 048
     Dates: start: 20180323
  15. SULFAMETHOXAZOLE\TRIMETHOPRIM [Concomitant]
     Active Substance: SULFAMETHOXAZOLE\TRIMETHOPRIM
     Indication: Infection prophylaxis
     Dosage: UNK
     Route: 048
     Dates: start: 20180405

REACTIONS (5)
  - Respiratory failure [Fatal]
  - Neoplasm progression [Fatal]
  - Intestinal obstruction [Not Recovered/Not Resolved]
  - Off label use [Unknown]
  - Product use in unapproved indication [Unknown]

NARRATIVE: CASE EVENT DATE: 20180404
